FAERS Safety Report 17372108 (Version 1)
Quarter: 2020Q1

REPORT INFORMATION
  Report Type: Report from Study
  Country: US (occurrence: US)
  Receive Date: 20200205
  Receipt Date: 20200205
  Transmission Date: 20200409
  Serious: Yes (Other)
  Sender: FDA-Public Use
  Company Number: US-MYLANLABS-2020M1012938

PATIENT
  Sex: Male

DRUGS (2)
  1. ESTRADIOL. [Suspect]
     Active Substance: ESTRADIOL
     Indication: GENDER DYSPHORIA
     Dosage: TRANSDERMAL ESTRADIOL PATCH WEEKLY, WHICH DELIVERED 75MCG DAILY.
     Route: 062
  2. SPIRONOLACTONE. [Concomitant]
     Active Substance: SPIRONOLACTONE
     Indication: GENDER DYSPHORIA
     Dosage: 100 MILLIGRAM, QD
     Route: 065

REACTIONS (1)
  - Azoospermia [Unknown]
